FAERS Safety Report 4399805-5 (Version None)
Quarter: 2004Q3

REPORT INFORMATION
  Report Type: 
  Country: None (occurrence: None)
  Receive Date: 20040714
  Receipt Date: 20040701
  Transmission Date: 20050211
  Serious: Yes (Hospitalization)
  Sender: FDA-Public Use
  Company Number: 2004044686

PATIENT
  Age: 75 Year
  Sex: Female

DRUGS (4)
  1. TOTALIP (ATORVASTATIN) [Suspect]
     Indication: ILL-DEFINED DISORDER
     Dosage: 10 MG (10 MG, 1 IN 1 D), ORAL
     Route: 048
     Dates: start: 20040612
  2. INDAPAMIDE [Suspect]
     Indication: ILL-DEFINED DISORDER
     Dosage: 2.5 MD (2.5 MG, 1 IN 1 D), ORAL
     Route: 048
     Dates: start: 20040612
  3. LANSOPRAZOLE [Suspect]
     Indication: ILL-DEFINED DISORDER
     Dosage: 15 MG (15 MG, 1 IN 1D), ORAL
     Route: 048
     Dates: start: 20040611
  4. NADROPARIN CALCIUM (NADROPARIN CALCIUM) [Suspect]
     Indication: ILL-DEFINED DISORDER
     Dosage: 0.4 ML (0.4 ML, 1 IN 1 D), SUBCUTANEOUS
     Route: 058
     Dates: start: 20040612

REACTIONS (2)
  - IATROGENIC INJURY [None]
  - TOXIC SKIN ERUPTION [None]
